FAERS Safety Report 9612658 (Version 2)
Quarter: 2013Q4

REPORT INFORMATION
  Report Type: Report from Study
  Country: JP (occurrence: JP)
  Receive Date: 20131010
  Receipt Date: 20131013
  Transmission Date: 20140711
  Serious: Yes (Death)
  Sender: FDA-Public Use
  Company Number: JP-TAKEDA-TCI2013A05641

PATIENT
  Age: 79 Year
  Sex: Female
  Weight: 36 kg

DRUGS (3)
  1. ALOGLIPTIN [Suspect]
     Indication: TYPE 2 DIABETES MELLITUS
     Dosage: 25 MG, QD
     Route: 048
     Dates: start: 20120227, end: 20121110
  2. DAONIL [Concomitant]
     Indication: TYPE 2 DIABETES MELLITUS
     Route: 048
  3. PLETAAL [Concomitant]
     Route: 048

REACTIONS (1)
  - Pneumonia [Fatal]
